FAERS Safety Report 8418361-5 (Version None)
Quarter: 2012Q2

REPORT INFORMATION
  Report Type: 
  Country: None (occurrence: None)
  Receive Date: 20120607
  Receipt Date: 20120604
  Transmission Date: 20120825
  Serious: Yes (Death)
  Sender: FDA-Public Use
  Company Number: BR-PFIZER INC-2012134615

PATIENT
  Age: 65 Year
  Sex: Male

DRUGS (5)
  1. BROMOPRIDE [Concomitant]
     Dosage: UNK
  2. OMEPRAZOLE [Concomitant]
     Dosage: UNK
  3. TENADREN [Concomitant]
     Dosage: UNK
  4. SUTENT [Suspect]
     Indication: RENAL CANCER
     Dosage: 50 MG, 1X/DAY
     Route: 048
     Dates: start: 20120102
  5. PIMOZIDE [Concomitant]
     Dosage: UNK

REACTIONS (1)
  - DEATH [None]
